FAERS Safety Report 23962416 (Version 2)
Quarter: 2024Q3

REPORT INFORMATION
  Report Type: Report from Study
  Country: US (occurrence: US)
  Receive Date: 20240611
  Receipt Date: 20240715
  Transmission Date: 20241017
  Serious: Yes (Other)
  Sender: JOHNSON AND JOHNSON
  Company Number: US-JNJFOC-20240609433

PATIENT
  Age: 28 Year
  Sex: Male
  Weight: 72.095 kg

DRUGS (4)
  1. SPRAVATO [Suspect]
     Active Substance: ESKETAMINE
     Indication: Depression
     Dosage: ^^56 MG, 3 TOTAL DOSES^^
     Dates: start: 20240222, end: 20240306
  2. SPRAVATO [Suspect]
     Active Substance: ESKETAMINE
     Dosage: ^^84 MG, 3 TOTAL DOSES^^
     Dates: start: 20240314, end: 20240325
  3. VRAYLAR [Concomitant]
     Active Substance: CARIPRAZINE
     Indication: Major depression
     Route: 048
     Dates: start: 20240325
  4. FANAPT [Concomitant]
     Active Substance: ILOPERIDONE
     Indication: Major depression
     Route: 048
     Dates: start: 20240625

REACTIONS (3)
  - Suicidal ideation [Unknown]
  - Depression [Recovered/Resolved]
  - Drug intolerance [Unknown]

NARRATIVE: CASE EVENT DATE: 20240101
